FAERS Safety Report 8809745 (Version 2)
Quarter: 2014Q2

REPORT INFORMATION
  Report Type: Spontaneous
  Country: US (occurrence: US)
  Receive Date: 20120926
  Receipt Date: 20140513
  Transmission Date: 20141212
  Serious: No
  Sender: FDA-Public Use
  Company Number: US-ASTRAZENECA-2012SE71687

PATIENT
  Age: 59 Year
  Sex: Female
  Weight: 61.2 kg

DRUGS (8)
  1. SEROQUEL [Suspect]
     Indication: STRESS
     Route: 048
     Dates: start: 201307, end: 201309
  2. SEROQUEL [Suspect]
     Indication: ANXIETY
     Route: 048
     Dates: start: 201307, end: 201309
  3. SEROQUEL [Suspect]
     Indication: SLEEP DISORDER
     Route: 048
     Dates: start: 201307, end: 201309
  4. SEROQUEL [Suspect]
     Indication: BIPOLAR DISORDER
     Route: 048
     Dates: start: 201307, end: 201309
  5. SEROQUEL [Suspect]
     Indication: STRESS
     Route: 048
     Dates: start: 2008
  6. SEROQUEL [Suspect]
     Indication: ANXIETY
     Route: 048
     Dates: start: 2008
  7. SEROQUEL [Suspect]
     Indication: SLEEP DISORDER
     Route: 048
     Dates: start: 2008
  8. SEROQUEL [Suspect]
     Indication: BIPOLAR DISORDER
     Route: 048
     Dates: start: 2008

REACTIONS (10)
  - Adverse event [Unknown]
  - Visual impairment [Unknown]
  - Dehydration [Unknown]
  - Glaucoma [Recovered/Resolved]
  - Road traffic accident [Unknown]
  - Injury [Not Recovered/Not Resolved]
  - Post-traumatic stress disorder [Unknown]
  - Constipation [Unknown]
  - Palpitations [Unknown]
  - Drug ineffective [Unknown]
